FAERS Safety Report 8341382-8 (Version None)
Quarter: 2012Q2

REPORT INFORMATION
  Report Type: 
  Country: None (occurrence: None)
  Receive Date: 20120507
  Receipt Date: 20091201
  Transmission Date: 20120825
  Serious: No
  Sender: FDA-Public Use
  Company Number: US-TEVA-2009029465

PATIENT
  Age: 91 Year
  Sex: Male

DRUGS (2)
  1. TREANDA [Suspect]
     Indication: CHRONIC LYMPHOCYTIC LEUKAEMIA
     Route: 042
  2. RITUXAN [Concomitant]

REACTIONS (4)
  - ANAEMIA [None]
  - HAEMATURIA [None]
  - HAEMORRHAGE URINARY TRACT [None]
  - NEUTROPENIA [None]
